FAERS Safety Report 4813187-3 (Version None)
Quarter: 2005Q4

REPORT INFORMATION
  Report Type: 
  Country: None (occurrence: None)
  Receive Date: 20051028
  Receipt Date: 20050406
  Transmission Date: 20060501
  Serious: No
  Sender: FDA-Public Use
  Company Number: US-GLAXOSMITHKLINE-A0553039A

PATIENT
  Age: 47 Year
  Sex: Female

DRUGS (4)
  1. ADVAIR DISKUS 100/50 [Suspect]
     Indication: ASTHMA
     Dosage: 1PUFF TWICE PER DAY
     Route: 055
     Dates: start: 20040101
  2. ATENOLOL [Concomitant]
     Route: 065
  3. ALBUTEROL [Concomitant]
  4. LORATADINE [Concomitant]
     Route: 065

REACTIONS (9)
  - CHEST DISCOMFORT [None]
  - COUGH [None]
  - DRY THROAT [None]
  - LOCALISED OEDEMA [None]
  - PHARYNGEAL OEDEMA [None]
  - PHARYNGITIS [None]
  - THROAT IRRITATION [None]
  - THROAT TIGHTNESS [None]
  - WHEEZING [None]
